FAERS Safety Report 20696290 (Version 2)
Quarter: 2022Q3

REPORT INFORMATION
  Report Type: Report from Study
  Country: FR (occurrence: FR)
  Receive Date: 20220411
  Receipt Date: 20220910
  Transmission Date: 20221027
  Serious: Yes (Life-Threatening, Hospitalization, Other)
  Sender: FDA-Public Use
  Company Number: FR-AMGEN-FRACT2022061918

PATIENT
  Age: 62 Year
  Sex: Male
  Weight: 79 kg

DRUGS (11)
  1. CARFILZOMIB [Suspect]
     Active Substance: CARFILZOMIB
     Indication: Plasma cell myeloma
     Dosage: 40.20 MILLIGRAM, PER CHEMO REGIM
     Route: 042
     Dates: start: 20220221
  2. CARFILZOMIB [Suspect]
     Active Substance: CARFILZOMIB
     Dosage: 112.50 MILLIGRAM, PER CHEMO REGIM
     Route: 042
     Dates: start: 20220328
  3. CARFILZOMIB [Suspect]
     Active Substance: CARFILZOMIB
     Dosage: 113 MILLIGRAM, PER CHEMO REGIM
     Route: 042
     Dates: start: 20220530
  4. ISATUXIMAB [Suspect]
     Active Substance: ISATUXIMAB
     Indication: Plasma cell myeloma
     Dosage: 840 MILLIGRAM, PER CHEMO REGIM
     Route: 042
     Dates: start: 20220221
  5. POMALIDOMIDE [Suspect]
     Active Substance: POMALIDOMIDE
     Indication: Plasma cell myeloma
     Dosage: 3 MILLIGRAM, PER CHEMO REGIM
     Route: 048
     Dates: start: 20220221
  6. DEXAMETHASONE [Suspect]
     Active Substance: DEXAMETHASONE
     Indication: Plasma cell myeloma
     Dosage: 40 MILLIGRAM, PER CHEMO REGIM
     Route: 065
     Dates: start: 20220221
  7. VALACYCLOVIR HYDROCHLORIDE [Concomitant]
     Active Substance: VALACYCLOVIR HYDROCHLORIDE
     Dosage: 500 MILLIGRAM, QD
     Dates: start: 20220221
  8. BACTRIM [Concomitant]
     Active Substance: SULFAMETHOXAZOLE\TRIMETHOPRIM
     Dosage: 1600 MILLIGRAM, QWK
     Dates: start: 20220221
  9. ELIQUIS [Concomitant]
     Active Substance: APIXABAN
     Dosage: 2.5 MILLIGRAM, QD
     Dates: start: 2020
  10. LANSOPRAZOLE [Concomitant]
     Active Substance: LANSOPRAZOLE
     Indication: Prophylaxis
     Dosage: 15 MILLIGRAM, QD
     Dates: start: 2020
  11. LEUCOVORIN CALCIUM [Concomitant]
     Active Substance: LEUCOVORIN CALCIUM
     Indication: Haematotoxicity
     Dosage: 5 MILLIGRAM, QD
     Dates: start: 20220221

REACTIONS (4)
  - Diabetic metabolic decompensation [Not Recovered/Not Resolved]
  - Neutropenia [Recovered/Resolved]
  - Neutropenia [Recovered/Resolved]
  - Neutropenia [Recovered/Resolved]

NARRATIVE: CASE EVENT DATE: 20220314
